FAERS Safety Report 11027364 (Version 2)
Quarter: 2015Q2

REPORT INFORMATION
  Report Type: Spontaneous
  Country: US (occurrence: US)
  Receive Date: 20150414
  Receipt Date: 20150525
  Transmission Date: 20150821
  Serious: No
  Sender: FDA-Public Use
  Company Number: US-JNJFOC-20111106883

PATIENT
  Age: 24 Year
  Sex: Female
  Weight: 56.7 kg

DRUGS (4)
  1. ZOFRAN [Concomitant]
     Active Substance: ONDANSETRON HYDROCHLORIDE
     Indication: CYCLIC VOMITING SYNDROME
     Route: 065
     Dates: start: 201110
  2. ATIVAN [Concomitant]
     Active Substance: LORAZEPAM
     Indication: CYCLIC VOMITING SYNDROME
     Route: 065
     Dates: start: 201110
  3. ORTHO TRI CYCLEN [Suspect]
     Active Substance: ETHINYL ESTRADIOL\NORGESTIMATE
     Indication: CONTRACEPTION
     Route: 065
     Dates: start: 201108
  4. PLAN B [Suspect]
     Active Substance: LEVONORGESTREL
     Indication: CONTRACEPTION
     Route: 048
     Dates: start: 20111105, end: 20111105

REACTIONS (1)
  - Nausea [Not Recovered/Not Resolved]

NARRATIVE: CASE EVENT DATE: 20111105
